FAERS Safety Report 9409970 (Version 1)
Quarter: 2013Q3

REPORT INFORMATION
  Report Type: Report from Study
  Country: CA (occurrence: CA)
  Receive Date: 20130719
  Receipt Date: 20130719
  Transmission Date: 20140515
  Serious: Yes (Life-Threatening, Hospitalization)
  Sender: FDA-Public Use
  Company Number: CA-JNJFOC-20130708710

PATIENT
  Age: 73 Year
  Sex: Male
  Weight: 93 kg

DRUGS (7)
  1. REMICADE [Suspect]
     Indication: COLITIS ULCERATIVE
     Dosage: LOADING DOSE
     Route: 042
     Dates: start: 20130607
  2. REMICADE [Suspect]
     Indication: COLITIS ULCERATIVE
     Dosage: THE PATIENT^S LAST INFUSION PRIOR TO EVENT- 2ND WEEK
     Route: 042
     Dates: start: 20130625
  3. AVODART [Concomitant]
     Route: 065
  4. SALOFALK [Concomitant]
     Route: 065
  5. CIPRO [Concomitant]
     Route: 065
  6. PANTOPRAZOLE [Concomitant]
     Route: 065
  7. PREDNISONE [Concomitant]
     Route: 065

REACTIONS (1)
  - Pulmonary embolism [Unknown]
